FAERS Safety Report 9980938 (Version 1)
Quarter: 2014Q1

REPORT INFORMATION
  Report Type: Spontaneous
  Country: US (occurrence: US)
  Receive Date: 20140307
  Receipt Date: 20140307
  Transmission Date: 20141002
  Serious: No
  Sender: FDA-Public Use
  Company Number: US-GLAXOSMITHKLINE-A1041202A

PATIENT
  Age: 66 Year
  Sex: 0

DRUGS (5)
  1. REQUIP [Suspect]
     Indication: MOVEMENT DISORDER
     Route: 065
  2. METHADONE [Suspect]
     Indication: MOVEMENT DISORDER
     Route: 065
  3. NEUPRO [Suspect]
     Indication: MOVEMENT DISORDER
     Route: 065
  4. OXYCONTIN [Concomitant]
     Indication: MOVEMENT DISORDER
  5. VALIUM [Concomitant]

REACTIONS (6)
  - Drug withdrawal syndrome [Unknown]
  - Thoracic outlet syndrome [Unknown]
  - Hypoaesthesia [Unknown]
  - Pain in extremity [Unknown]
  - Adverse drug reaction [Unknown]
  - Drug ineffective [Unknown]
